FAERS Safety Report 19423998 (Version 1)
Quarter: 2021Q2

REPORT INFORMATION
  Report Type: Spontaneous
  Country: BR (occurrence: BR)
  Receive Date: 20210616
  Receipt Date: 20210616
  Transmission Date: 20210717
  Serious: Yes (Hospitalization, Other)
  Sender: FDA-Public Use
  Company Number: BR-NOVOPROD-813915

PATIENT
  Age: 26 Year
  Sex: Male
  Weight: 72 kg

DRUGS (6)
  1. NOVORAPID [Suspect]
     Active Substance: INSULIN ASPART
     Dosage: UNK (CORRECTIONS ACCORDING TO CAPILLARY BLOOD GLUCOSE THROUGHOUT THE DAY)
     Route: 065
  2. FIASP [Suspect]
     Active Substance: INSULIN ASPART
     Indication: TYPE 1 DIABETES MELLITUS
     Dosage: 12 IU, TID (COFFEE, LUNCH AND DINNER)
     Route: 065
  3. TRESIBA [Suspect]
     Active Substance: INSULIN DEGLUDEC
     Dosage: 30 IU
     Route: 065
  4. INSULIN GLARGINE [Suspect]
     Active Substance: INSULIN GLARGINE
     Indication: PRODUCT USED FOR UNKNOWN INDICATION
     Dosage: 40 UI EARLY AND 10 UI AT NIGHT
     Route: 065
  5. NOVORAPID [Suspect]
     Active Substance: INSULIN ASPART
     Indication: TYPE 1 DIABETES MELLITUS
     Dosage: 53 IU, QD (18 UI BEFORE BREAKFAST, 20 UI BEFORE LUNCH AND 15 UI BEFORE DINNER)
     Route: 065
  6. TRESIBA [Suspect]
     Active Substance: INSULIN DEGLUDEC
     Indication: TYPE 1 DIABETES MELLITUS
     Dosage: 36 IU
     Route: 065

REACTIONS (5)
  - Treatment noncompliance [Unknown]
  - Coronary artery disease [Unknown]
  - Hypoglycaemic seizure [Unknown]
  - Obsessive-compulsive disorder [Unknown]
  - Hypoglycaemic unconsciousness [Unknown]

NARRATIVE: CASE EVENT DATE: 2018
